FAERS Safety Report 5505503-4 (Version None)
Quarter: 2007Q4

REPORT INFORMATION
  Report Type: 
  Country: None (occurrence: None)
  Receive Date: 20071102
  Receipt Date: 20071022
  Transmission Date: 20080405
  Serious: Yes (Other)
  Sender: FDA-Public Use
  Company Number: US-GENENTECH-233587

PATIENT
  Sex: Female
  Weight: 72.562 kg

DRUGS (4)
  1. AVASTIN [Suspect]
     Indication: MACULAR DEGENERATION
     Dosage: UNK, UNK
     Route: 031
     Dates: start: 20060201
  2. VYTORIN [Concomitant]
     Indication: DRUG USE FOR UNKNOWN INDICATION
  3. ULTRAM [Concomitant]
     Indication: DRUG USE FOR UNKNOWN INDICATION
  4. ETODOLAC [Concomitant]
     Indication: DRUG USE FOR UNKNOWN INDICATION

REACTIONS (1)
  - HYPERTENSION [None]
